FAERS Safety Report 10742661 (Version 2)
Quarter: 2015Q1

REPORT INFORMATION
  Report Type: Spontaneous
  Country: US (occurrence: US)
  Receive Date: 20150127
  Receipt Date: 20150130
  Transmission Date: 20150721
  Serious: Yes (Other)
  Sender: FDA-Public Use
  Company Number: US-PFIZER INC-2015032044

PATIENT
  Sex: Male

DRUGS (1)
  1. VIAGRA [Suspect]
     Active Substance: SILDENAFIL CITRATE
     Dosage: UNK, ONCE IN A MONTH OR SOMETIMES TWICE A MONTH

REACTIONS (3)
  - Cataract [Unknown]
  - Vision blurred [Recovered/Resolved]
  - Intraocular pressure increased [Unknown]
